FAERS Safety Report 5880119-9 (Version None)
Quarter: 2008Q3

REPORT INFORMATION
  Report Type: 
  Country: None (occurrence: None)
  Receive Date: 20080912
  Receipt Date: 20080902
  Transmission Date: 20090109
  Serious: Yes (Hospitalization)
  Sender: FDA-Public Use
  Company Number: SE-PFIZER INC-2008073320

PATIENT
  Sex: Female

DRUGS (1)
  1. ZOLOFT [Suspect]
     Indication: DEPRESSION
     Dosage: DAILY DOSE:75MG
     Route: 048
     Dates: start: 20031030, end: 20071201

REACTIONS (4)
  - HEADACHE [None]
  - MYOCLONUS [None]
  - RASH [None]
  - TIC [None]
